FAERS Safety Report 5151882-X (Version None)
Quarter: 2006Q4

REPORT INFORMATION
  Report Type: 
  Country: None (occurrence: None)
  Receive Date: 20061109
  Receipt Date: 20061106
  Transmission Date: 20070319
  Serious: Yes (Hospitalization)
  Sender: FDA-Public Use
  Company Number: THQ2006A01040

PATIENT
  Age: 61 Year
  Sex: Female

DRUGS (5)
  1. LANSOPRAZOLE [Suspect]
     Indication: MUSCULOSKELETAL PAIN
     Dosage: PER ORAL
     Route: 048
     Dates: start: 20061010, end: 20061015
  2. SOLUPRED              (PREDNISOLONE SODIUM SULFOBENZOATE) [Concomitant]
  3. ASPIRIN [Concomitant]
  4. SOTALOL HCL [Concomitant]
  5. VASTAREL                   (TRIMETAZIDINE HYDROCHLORIDE) [Concomitant]

REACTIONS (3)
  - BALANCE DISORDER [None]
  - FALL [None]
  - VERTIGO [None]
